FAERS Safety Report 10053816 (Version 2)
Quarter: 2014Q2

REPORT INFORMATION
  Report Type: Report from Study
  Country: FR (occurrence: FR)
  Receive Date: 20140402
  Receipt Date: 20140421
  Transmission Date: 20141212
  Serious: Yes (Hospitalization)
  Sender: FDA-Public Use
  Company Number: PHHY2014FR038773

PATIENT
  Age: 42 Year
  Sex: Female
  Weight: 54 kg

DRUGS (4)
  1. ICL670A [Suspect]
     Indication: IRON OVERLOAD
     Dosage: 1500 MG, DAILY
     Route: 048
     Dates: start: 200609
  2. COZAAR [Concomitant]
     Dosage: 50 MG, DAILY
  3. BISOPROLOL [Concomitant]
     Dosage: 2.5 MG, DAILY
  4. SPECIAFOLDINE [Concomitant]
     Dosage: 2 DF, DAILY

REACTIONS (1)
  - Osteonecrosis [Recovering/Resolving]
